FAERS Safety Report 10066293 (Version 1)
Quarter: 2014Q2

REPORT INFORMATION
  Report Type: Spontaneous
  Country: JP (occurrence: JP)
  Receive Date: 20140408
  Receipt Date: 20140408
  Transmission Date: 20141212
  Serious: Yes (Other)
  Sender: FDA-Public Use
  Company Number: JP-BRISTOL-MYERS SQUIBB COMPANY-20594503

PATIENT
  Age: 5 Decade
  Sex: Male

DRUGS (1)
  1. METGLUCO [Suspect]
     Route: 048

REACTIONS (1)
  - Myocardial infarction [Unknown]
